FAERS Safety Report 5766043-0 (Version None)
Quarter: 2008Q2

REPORT INFORMATION
  Report Type: 
  Country: None (occurrence: None)
  Receive Date: 20080611
  Receipt Date: 20080530
  Transmission Date: 20081010
  Serious: Yes (Other)
  Sender: FDA-Public Use
  Company Number: GB-PFIZER INC-2008046850

PATIENT
  Age: 34 Year
  Sex: Male
  Weight: 94 kg

DRUGS (1)
  1. CHANTIX [Suspect]
     Route: 048
     Dates: start: 20080405, end: 20080428

REACTIONS (2)
  - PERSONALITY CHANGE [None]
  - SOMNOLENCE [None]
